FAERS Safety Report 6765355-1 (Version None)
Quarter: 2010Q2

REPORT INFORMATION
  Report Type: 
  Country: None (occurrence: None)
  Receive Date: 20100611
  Receipt Date: 20100604
  Transmission Date: 20101027
  Serious: Yes (Hospitalization)
  Sender: FDA-Public Use
  Company Number: DK-WYE-G06236410

PATIENT
  Sex: Male

DRUGS (4)
  1. EFFEXOR [Suspect]
     Dosage: UNKNOWN
     Route: 048
  2. LAMOTRIGINE [Suspect]
  3. ANTABUSE [Suspect]
     Dosage: UNKNOWN
     Route: 048
  4. SEROQUEL [Suspect]
     Dosage: UNKNOWN
     Route: 048

REACTIONS (2)
  - CONSTIPATION [None]
  - ILEUS PARALYTIC [None]
